FAERS Safety Report 14606442 (Version 1)
Quarter: 2018Q1

REPORT INFORMATION
  Report Type: Spontaneous
  Country: FR (occurrence: FR)
  Receive Date: 20180307
  Receipt Date: 20180307
  Transmission Date: 20180509
  Serious: Yes (Hospitalization)
  Sender: FDA-Public Use
  Company Number: FR-ROCHE-2079703

PATIENT
  Age: 43 Year
  Sex: Male
  Weight: 75 kg

DRUGS (3)
  1. CAMPTO [Concomitant]
     Active Substance: IRINOTECAN
     Route: 065
  2. TRILEPTAL [Concomitant]
     Active Substance: OXCARBAZEPINE
     Route: 065
  3. AVASTIN [Suspect]
     Active Substance: BEVACIZUMAB
     Indication: OLIGOASTROCYTOMA
     Dosage: 25 MG/ML
     Route: 042
     Dates: start: 20150820

REACTIONS (3)
  - Osteonecrosis [Not Recovered/Not Resolved]
  - Rotator cuff syndrome [Not Recovered/Not Resolved]
  - Pain in extremity [Not Recovered/Not Resolved]

NARRATIVE: CASE EVENT DATE: 20171101
